FAERS Safety Report 8050676-5 (Version None)
Quarter: 2012Q1

REPORT INFORMATION
  Report Type: 
  Country: None (occurrence: None)
  Receive Date: 20120117
  Receipt Date: 20120117
  Transmission Date: 20120608
  Serious: Yes (Hospitalization, Other)
  Sender: FDA-Public Use
  Company Number: None

PATIENT
  Age: 30 Month
  Sex: Female
  Weight: 49.895 kg

DRUGS (1)
  1. ADDERALL 5 [Suspect]

REACTIONS (5)
  - CRIME [None]
  - WEIGHT DECREASED [None]
  - HOMELESS [None]
  - HALLUCINATION [None]
  - PARANOIA [None]
